FAERS Safety Report 15427365 (Version 2)
Quarter: 2018Q3

REPORT INFORMATION
  Report Type: Spontaneous
  Country: US (occurrence: US)
  Receive Date: 20180925
  Receipt Date: 20180926
  Transmission Date: 20181010
  Serious: Yes (Hospitalization)
  Sender: FDA-Public Use
  Company Number: US-CELGENEUS-USA-20180907136

PATIENT
  Age: 72 Year
  Sex: Male

DRUGS (10)
  1. CIPROFLOXACIN. [Concomitant]
     Active Substance: CIPROFLOXACIN
     Indication: INFECTION
     Dosage: 500 MILLIGRAM
     Route: 048
     Dates: start: 20180912
  2. POTASSIUM [Concomitant]
     Active Substance: POTASSIUM
     Indication: ELECTROLYTE SUBSTITUTION THERAPY
     Dosage: 10 MILLIEQUIVALENTS
     Route: 048
     Dates: start: 20180517
  3. POMALYST [Suspect]
     Active Substance: POMALIDOMIDE
     Indication: PLASMA CELL MYELOMA
     Dosage: 3 MILLIGRAM
     Route: 048
     Dates: start: 201706, end: 20170917
  4. METRONIDAZOLE. [Concomitant]
     Active Substance: METRONIDAZOLE
     Indication: INFECTION
     Dosage: 250 MILLIGRAM
     Route: 048
     Dates: start: 20180912
  5. HYDROMORPHONE [Concomitant]
     Active Substance: HYDROMORPHONE
     Indication: PAIN
     Dosage: 4 MILLIGRAM
     Route: 048
     Dates: start: 20170503
  6. POMALYST [Suspect]
     Active Substance: POMALIDOMIDE
     Dosage: 3 MILLIGRAM
     Route: 048
     Dates: start: 20171212, end: 20180917
  7. POTASSIUM [Concomitant]
     Active Substance: POTASSIUM
     Indication: CARDIAC DISORDER
  8. MORPHINE [Concomitant]
     Active Substance: MORPHINE
     Indication: PAIN
     Dosage: 60 MILLIGRAM
     Route: 048
     Dates: start: 20170517
  9. CARVEDILOL. [Concomitant]
     Active Substance: CARVEDILOL
     Indication: HYPERTENSION
     Dosage: 25 MILLIGRAM
     Route: 048
     Dates: start: 20170329
  10. CARVEDILOL. [Concomitant]
     Active Substance: CARVEDILOL
     Indication: CARDIAC DISORDER

REACTIONS (5)
  - Impaired healing [Not Recovered/Not Resolved]
  - Blood potassium decreased [Not Recovered/Not Resolved]
  - Gait inability [Not Recovered/Not Resolved]
  - Asthenia [Not Recovered/Not Resolved]
  - Malaise [Not Recovered/Not Resolved]

NARRATIVE: CASE EVENT DATE: 20180826
